FAERS Safety Report 11239699 (Version 1)
Quarter: 2015Q3

REPORT INFORMATION
  Report Type: Spontaneous
  Country: US (occurrence: None)
  Receive Date: 20150701
  Receipt Date: 20150701
  Transmission Date: 20151125
  Serious: No
  Sender: FDA-Public Use
  Company Number: None

PATIENT
  Age: 40 Day
  Sex: Female
  Weight: 63.5 kg

DRUGS (1)
  1. ESTRADIOL TRANSDERMAL SYSTEM [Suspect]
     Active Substance: ESTRADIOL
     Indication: HYSTERECTOMY
     Dosage: EVERY THREE DAYS/ APPLIED AS MEDICATED PATCH TO SKIN
     Dates: start: 20150630, end: 20150630

REACTIONS (7)
  - Tremor [None]
  - Malaise [None]
  - Product quality issue [None]
  - Hyperhidrosis [None]
  - Product substitution issue [None]
  - Dizziness [None]
  - Hot flush [None]

NARRATIVE: CASE EVENT DATE: 20150630
